FAERS Safety Report 7988825-7 (Version None)
Quarter: 2011Q4

REPORT INFORMATION
  Report Type: 
  Country: None (occurrence: None)
  Receive Date: 20111215
  Receipt Date: 20111215
  Transmission Date: 20120403
  Serious: Yes (Other)
  Sender: FDA-Public Use
  Company Number: None

PATIENT
  Age: 81 Year
  Sex: Female

DRUGS (4)
  1. AZASITE [Suspect]
     Indication: EYE INFECTION
     Dosage: 1 DROP BID BOTH EYES
     Route: 047
     Dates: start: 20111122, end: 20111126
  2. OPTIFREE [Concomitant]
  3. SYSTANE [Concomitant]
  4. REPLENISH [Concomitant]

REACTIONS (5)
  - RASH [None]
  - PRURITUS [None]
  - FEELING JITTERY [None]
  - BURNING SENSATION [None]
  - NERVOUSNESS [None]
